FAERS Safety Report 8107777-2 (Version None)
Quarter: 2012Q1

REPORT INFORMATION
  Report Type: 
  Country: None (occurrence: None)
  Receive Date: 20120202
  Receipt Date: 20120130
  Transmission Date: 20120608
  Serious: No
  Sender: FDA-Public Use
  Company Number: US-TEVA-320408USA

PATIENT
  Sex: Female
  Weight: 118.04 kg

DRUGS (4)
  1. ALBUTEROL INHALER [Concomitant]
     Indication: ASTHMA
  2. PLAN B ONE-STEP [Suspect]
     Indication: POST COITAL CONTRACEPTION
     Dosage: 1.5 MILLIGRAM;
     Route: 048
     Dates: start: 20120125, end: 20120125
  3. OCELLA 28 [Concomitant]
     Indication: MENORRHAGIA
  4. OCELLA 28 [Concomitant]
     Indication: CONTRACEPTION

REACTIONS (4)
  - NAUSEA [None]
  - HEADACHE [None]
  - BACK PAIN [None]
  - PELVIC PAIN [None]
